FAERS Safety Report 19142432 (Version 1)
Quarter: 2021Q2

REPORT INFORMATION
  Report Type: Spontaneous
  Country: JP (occurrence: JP)
  Receive Date: 20210416
  Receipt Date: 20210416
  Transmission Date: 20210717
  Serious: Yes (Other)
  Sender: FDA-Public Use
  Company Number: JP-NOVAST LABORATORIES LTD.-2021NOV000237

PATIENT
  Sex: Female

DRUGS (17)
  1. FLUOROURACIL. [Suspect]
     Active Substance: FLUOROURACIL
     Dosage: 2400 MILLIGRAM/SQ. METER, FOR 46 HOURS FROM DAY 1
     Route: 065
  2. BEZAFIBRATE [Concomitant]
     Active Substance: BEZAFIBRATE
     Indication: RECTAL CANCER STAGE IV
     Dosage: 200 MILLIGRAM, BID
     Route: 065
  3. AZILSARTAN [Concomitant]
     Active Substance: AZILSARTAN KAMEDOXOMIL
     Indication: HYPERTENSION
     Dosage: 20 MILLIGRAM, QD
     Route: 065
  4. LEVOFOLINATE CALCIUM [Concomitant]
     Active Substance: LEVOLEUCOVORIN CALCIUM
     Indication: RECTAL CANCER STAGE IV
     Dosage: 200 MILLIGRAM/SQ. METER, EVERY 2 WEEKS
     Route: 065
  5. PANITUMUMAB [Concomitant]
     Active Substance: PANITUMUMAB
     Indication: RECTAL CANCER STAGE IV
     Dosage: 6 MILLIGRAM/KILOGRAM, EVERY 2 WEEKS
     Route: 065
  6. RAMUCIRUMAB [Concomitant]
     Active Substance: RAMUCIRUMAB
     Indication: RECTAL CANCER STAGE IV
     Dosage: 8 MG/KG, EVERY 2 WEEKS
     Route: 065
  7. DEXAMETHASONE. [Concomitant]
     Active Substance: DEXAMETHASONE
     Indication: SUPPORTIVE CARE
     Dosage: 9.9 MILLIGRAM, ON DAY 1
     Route: 042
  8. URAPIDIL [Concomitant]
     Active Substance: URAPIDIL
     Indication: SUPPORTIVE CARE
     Dosage: 15 MILLIGRAM, BID
     Route: 065
  9. APREPITANT. [Concomitant]
     Active Substance: APREPITANT
     Dosage: 80 MILLIGRAM, ON DAY 2 AND 3
     Route: 065
  10. FLUOROURACIL. [Suspect]
     Active Substance: FLUOROURACIL
     Indication: RECTAL CANCER STAGE IV
     Dosage: 400 MILLIGRAM/SQ. METER, ON DAY 1
     Route: 065
  11. PALONOSETRON. [Concomitant]
     Active Substance: PALONOSETRON HYDROCHLORIDE
     Indication: SUPPORTIVE CARE
     Dosage: 0.75 MILLIGRAM, ON DAY 1
     Route: 065
  12. MINOCYCLINE [Concomitant]
     Active Substance: MINOCYCLINE HYDROCHLORIDE
     Indication: SUPPORTIVE CARE
     Dosage: 100 MILLIGRAM, QD
     Route: 065
  13. EDOXABAN [Concomitant]
     Active Substance: EDOXABAN TOSYLATE
     Indication: SUPPORTIVE CARE
     Dosage: 30 MILLIGRAM, QD
     Route: 065
  14. IRINOTECAN [Concomitant]
     Active Substance: IRINOTECAN
     Indication: RECTAL CANCER STAGE IV
     Dosage: 150 MILLIGRAM/SQ. METER, ON DAY 1
     Route: 065
  15. APREPITANT. [Concomitant]
     Active Substance: APREPITANT
     Indication: SUPPORTIVE CARE
     Dosage: 125 MILLIGRAM, ON DAY 1
     Route: 065
  16. DEXAMETHASONE. [Concomitant]
     Active Substance: DEXAMETHASONE
     Dosage: 8 MILLIGRAM, ON DAY 2 AND 3
     Route: 048
  17. MIRABEGRON [Concomitant]
     Active Substance: MIRABEGRON
     Indication: SUPPORTIVE CARE
     Dosage: 25 MILLIGRAM, BID
     Route: 065

REACTIONS (5)
  - Hypertriglyceridaemia [Recovering/Resolving]
  - Fatigue [Unknown]
  - Skin toxicity [Unknown]
  - Decreased appetite [Unknown]
  - Nausea [Recovered/Resolved]
